FAERS Safety Report 5114075-8 (Version None)
Quarter: 2006Q3

REPORT INFORMATION
  Report Type: 
  Country: None (occurrence: None)
  Receive Date: 20060925
  Receipt Date: 20060825
  Transmission Date: 20061208
  Serious: Yes (Death, Hospitalization, Other)
  Sender: FDA-Public Use
  Company Number: BR-GLAXOSMITHKLINE-A0618128A

PATIENT
  Age: 39 Year
  Sex: Male

DRUGS (3)
  1. ZYBAN [Suspect]
     Dosage: 150MG UNKNOWN
     Route: 065
     Dates: start: 20060527, end: 20060531
  2. DIPIRONE [Concomitant]
     Indication: TONSILLITIS
  3. NONSTEROIDAL ANTI-INFLAMMATORY DRUGS [Concomitant]
     Indication: TONSILLITIS

REACTIONS (18)
  - ANXIETY [None]
  - BRADYCARDIA [None]
  - CARDIAC ARREST [None]
  - CYANOSIS [None]
  - DYSPNOEA [None]
  - HEPATIC FAILURE [None]
  - HYPERHIDROSIS [None]
  - HYPOTENSION [None]
  - MYOGLOBINURIA [None]
  - MYOSITIS [None]
  - OLIGURIA [None]
  - PAIN IN EXTREMITY [None]
  - PALLOR [None]
  - PYREXIA [None]
  - RENAL FAILURE [None]
  - RHABDOMYOLYSIS [None]
  - TACHYCARDIA [None]
  - THROMBOCYTOPENIA [None]
